FAERS Safety Report 16582431 (Version 2)
Quarter: 2019Q3

REPORT INFORMATION
  Report Type: Spontaneous
  Country: JP (occurrence: JP)
  Receive Date: 20190717
  Receipt Date: 20190913
  Transmission Date: 20191004
  Serious: Yes (Life-Threatening, Hospitalization, Other)
  Sender: FDA-Public Use
  Company Number: JP-LUPIN PHARMACEUTICALS INC.-2019-04465

PATIENT
  Age: 66 Year
  Sex: Male
  Weight: 62 kg

DRUGS (2)
  1. QUETIAPINE. [Suspect]
     Active Substance: QUETIAPINE
     Dosage: 25 MILLIGRAM, UNK
     Route: 048
     Dates: start: 201708
  2. QUETIAPINE. [Suspect]
     Active Substance: QUETIAPINE
     Indication: DELIRIUM
     Dosage: 12.5 MILLIGRAM, UNK
     Route: 048
     Dates: start: 201707, end: 201708

REACTIONS (13)
  - Emphysema [Recovered/Resolved]
  - Diabetic ketoacidosis [Recovering/Resolving]
  - Diabetes mellitus [Recovered/Resolved]
  - Ischaemic enteritis [Recovered/Resolved]
  - Blood pressure diastolic decreased [Recovered/Resolved]
  - Intestinal ischaemia [Recovered/Resolved]
  - Pancreatic enzymes increased [Recovered/Resolved]
  - Adrenomegaly [Recovered/Resolved]
  - Blood phosphorus increased [Recovered/Resolved]
  - Gastrointestinal necrosis [Recovered/Resolved]
  - Renal impairment [Recovered/Resolved]
  - Fall [Recovered/Resolved]
  - Blood potassium increased [Recovered/Resolved]
